FAERS Safety Report 16242363 (Version 2)
Quarter: 2020Q2

REPORT INFORMATION
  Report Type: Spontaneous
  Country: US (occurrence: US)
  Receive Date: 20190426
  Receipt Date: 20200403
  Transmission Date: 20200713
  Serious: Yes (Death, Hospitalization)
  Sender: FDA-Public Use
  Company Number: US-JNJFOC-20190417405

PATIENT
  Age: 82 Year
  Sex: Male

DRUGS (5)
  1. ASPIRIN                            /00002701/ [Suspect]
     Active Substance: ASPIRIN
     Indication: IMPLANTABLE DEFIBRILLATOR INSERTION
     Route: 065
     Dates: end: 20150724
  2. XARELTO [Suspect]
     Active Substance: RIVAROXABAN
     Indication: THROMBOSIS
     Dosage: 20 MG
     Route: 048
     Dates: start: 2015, end: 20150724
  3. ASPIRIN                            /00002701/ [Suspect]
     Active Substance: ASPIRIN
     Route: 065
     Dates: start: 20150729
  4. XARELTO [Suspect]
     Active Substance: RIVAROXABAN
     Indication: ATRIAL FIBRILLATION
  5. XARELTO [Suspect]
     Active Substance: RIVAROXABAN
     Indication: CEREBROVASCULAR ACCIDENT PROPHYLAXIS

REACTIONS (2)
  - Gastrointestinal haemorrhage [Recovering/Resolving]
  - Contusion [Unknown]

NARRATIVE: CASE EVENT DATE: 201507
